FAERS Safety Report 6293374-0 (Version None)
Quarter: 2009Q3

REPORT INFORMATION
  Report Type: 
  Country: None (occurrence: None)
  Receive Date: 20090731
  Receipt Date: 20090724
  Transmission Date: 20100115
  Serious: Yes (Death)
  Sender: FDA-Public Use
  Company Number: PT-MERCK-0907PRT00007

PATIENT
  Age: 97 Year
  Sex: Male

DRUGS (1)
  1. INVANZ [Suspect]
     Route: 041
     Dates: start: 20090701, end: 20090701

REACTIONS (2)
  - CONVULSION [None]
  - DEATH [None]
